FAERS Safety Report 8057307-9 (Version None)
Quarter: 2012Q1

REPORT INFORMATION
  Report Type: 
  Country: None (occurrence: None)
  Receive Date: 20120119
  Receipt Date: 20120119
  Transmission Date: 20120608
  Serious: Yes (Hospitalization)
  Sender: FDA-Public Use
  Company Number: PHHO2008EE15033

PATIENT
  Sex: Female

DRUGS (4)
  1. HEPARIN [Concomitant]
  2. METOPROLOL TARTRATE [Concomitant]
  3. MIACALCIC/CALCITONIN-SANDOZ [Suspect]
     Indication: OSTEOPOROSIS POSTMENOPAUSAL
     Dosage: UNK
     Dates: start: 20070910
  4. GLUCOSAMINE [Concomitant]

REACTIONS (3)
  - FLATULENCE [None]
  - GASTROINTESTINAL DISORDER [None]
  - ABDOMINAL PAIN [None]
